FAERS Safety Report 19890017 (Version 1)
Quarter: 2021Q3

REPORT INFORMATION
  Report Type: Spontaneous
  Country: US (occurrence: US)
  Receive Date: 20210928
  Receipt Date: 20210928
  Transmission Date: 20211014
  Serious: No
  Sender: FDA-Public Use
  Company Number: US-JNJFOC-20210933852

PATIENT
  Sex: Female

DRUGS (1)
  1. MENS ROGAINE EXTRA STRENGTH [Suspect]
     Active Substance: MINOXIDIL
     Indication: ALOPECIA
     Dosage: 2 CAPFUL BEFORE BED TIME ONCE A DAY
     Route: 065
     Dates: start: 202106

REACTIONS (3)
  - Off label use [Unknown]
  - Overdose [Unknown]
  - Product use issue [Unknown]

NARRATIVE: CASE EVENT DATE: 202106
